FAERS Safety Report 6309569-3 (Version None)
Quarter: 2009Q3

REPORT INFORMATION
  Report Type: 
  Country: None (occurrence: None)
  Receive Date: 20090814
  Receipt Date: 20090803
  Transmission Date: 20100115
  Serious: Yes (Hospitalization)
  Sender: FDA-Public Use
  Company Number: PHHY2009AU26949

PATIENT
  Sex: Male

DRUGS (5)
  1. CLOZARIL [Suspect]
     Dosage: 175 MG, UNK
     Route: 048
     Dates: start: 20090612
  2. CLOZARIL [Suspect]
     Dosage: 75 MG
  3. CLOZARIL [Suspect]
     Dosage: 175 MG, UNK
     Dates: end: 20090626
  4. PRAVASTATIN [Concomitant]
     Indication: LIPIDS INCREASED
     Dosage: 40 MG, UNK
     Route: 048
  5. ANTIDEPRESSANTS [Concomitant]

REACTIONS (11)
  - BLOOD CREATINE PHOSPHOKINASE INCREASED [None]
  - CHILLS [None]
  - EOSINOPHIL COUNT INCREASED [None]
  - FATIGUE [None]
  - HAEMOGLOBIN INCREASED [None]
  - HYPOTENSION [None]
  - INFLUENZA LIKE ILLNESS [None]
  - MALAISE [None]
  - MYOCARDITIS [None]
  - PYREXIA [None]
  - TROPONIN INCREASED [None]
